FAERS Safety Report 21485949 (Version 2)
Quarter: 2022Q4

REPORT INFORMATION
  Report Type: Spontaneous
  Country: BE (occurrence: BE)
  Receive Date: 20221020
  Receipt Date: 20221109
  Transmission Date: 20230112
  Serious: Yes (Other)
  Sender: FDA-Public Use
  Company Number: None

PATIENT
  Sex: Female

DRUGS (9)
  1. SUFENTANIL [Suspect]
     Active Substance: SUFENTANIL
     Indication: Urethral stent removal
     Dosage: UNK
     Route: 065
     Dates: start: 20210927, end: 20210927
  2. SUFENTANIL [Suspect]
     Active Substance: SUFENTANIL
     Indication: Pain
  3. CEFAZOLIN [Suspect]
     Active Substance: CEFAZOLIN
     Indication: Urethral stent removal
     Dosage: UNK
     Route: 065
     Dates: end: 20210927
  4. IBUPROFEN [Suspect]
     Active Substance: IBUPROFEN
     Indication: Urethral stent removal
     Dosage: UNK
     Route: 065
     Dates: end: 20210927
  5. VANCOMYCIN [Suspect]
     Active Substance: VANCOMYCIN
     Indication: Urethral stent removal
     Dosage: UNK
     Route: 065
     Dates: end: 20210927
  6. ACETAMINOPHEN [Suspect]
     Active Substance: ACETAMINOPHEN
     Indication: Urethral stent removal
     Dosage: UNK
     Route: 065
     Dates: end: 20210927
  7. PROPOFOL [Suspect]
     Active Substance: PROPOFOL
     Indication: Urethral stent removal
     Dosage: UNK
     Route: 065
     Dates: end: 20210927
  8. TRIMETHOPRIM [Concomitant]
     Active Substance: TRIMETHOPRIM
     Dosage: UNK
     Route: 065
  9. VITAMIN D [Concomitant]
     Active Substance: VITAMIN D NOS
     Dosage: UNK
     Route: 065

REACTIONS (4)
  - Oxygen saturation decreased [Recovered/Resolved]
  - Periorbital swelling [Recovered/Resolved]
  - Angioedema [Recovered/Resolved]
  - Lip swelling [Recovered/Resolved]

NARRATIVE: CASE EVENT DATE: 20210927
